FAERS Safety Report 4716591-7 (Version None)
Quarter: 2005Q3

REPORT INFORMATION
  Report Type: 
  Country: None (occurrence: None)
  Receive Date: 20050713
  Receipt Date: 20050705
  Transmission Date: 20060218
  Serious: Yes (Hospitalization)
  Sender: FDA-Public Use
  Company Number: 2005097933

PATIENT
  Age: 73 Year
  Sex: Female
  Weight: 75 kg

DRUGS (5)
  1. FRAGMIN [Suspect]
     Indication: KNEE ARTHROPLASTY
     Dosage: 5000 I.U. (1 D), SUBCUTANEOUS
     Route: 058
     Dates: start: 20050627
  2. DICLOMELAN (DICLOFENAC SODIUM) [Concomitant]
  3. PANTOPRAZOL (PANTOPRAZOLE) [Concomitant]
  4. RAMIPRIL/HYDROCHLOROTHIAZIDE (HYDROCHLOROTHIAZIDE, RAMIPRIL) [Concomitant]
  5. SOTALOL HCL [Concomitant]

REACTIONS (1)
  - DEEP VEIN THROMBOSIS [None]
